FAERS Safety Report 17396187 (Version 1)
Quarter: 2020Q1

REPORT INFORMATION
  Report Type: Spontaneous
  Country: US (occurrence: US)
  Receive Date: 20200210
  Receipt Date: 20200210
  Transmission Date: 20200409
  Serious: Yes (Other)
  Sender: FDA-Public Use
  Company Number: US-SA-2020SA032587

PATIENT
  Age: 17 Year
  Sex: Female

DRUGS (1)
  1. ADMELOG [Suspect]
     Active Substance: INSULIN LISPRO
     Indication: TYPE 1 DIABETES MELLITUS
     Dosage: 10-12 UNITS, 3 TIMES A DAY
     Route: 065

REACTIONS (2)
  - Wrong technique in device usage process [Unknown]
  - Autism spectrum disorder [Unknown]
